FAERS Safety Report 11391762 (Version 6)
Quarter: 2016Q4

REPORT INFORMATION
  Report Type: Spontaneous
  Country: US (occurrence: US)
  Receive Date: 20150818
  Receipt Date: 20161212
  Transmission Date: 20170206
  Serious: No
  Sender: FDA-Public Use
  Company Number: US-PFIZER INC-2015272109

PATIENT
  Age: 76 Year
  Sex: Female

DRUGS (17)
  1. FLUOXETINE HCL [Concomitant]
     Active Substance: FLUOXETINE HYDROCHLORIDE
     Dosage: 10 MG, DAILY
     Route: 048
  2. LEVOTHYROXINE SODIUM. [Concomitant]
     Active Substance: LEVOTHYROXINE SODIUM
     Dosage: 88 UG, DAILY
     Route: 048
  3. METFORMIN HCL [Concomitant]
     Active Substance: METFORMIN HYDROCHLORIDE
     Dosage: 1000 MG, 2X/DAY (WITH MEALS)
     Route: 048
  4. DIFLUCAN [Concomitant]
     Active Substance: FLUCONAZOLE
     Dosage: 150 MG, 1X/DAY
     Route: 048
     Dates: start: 20151201
  5. LYRICA [Suspect]
     Active Substance: PREGABALIN
     Indication: BACK PAIN
     Dosage: 150 MG CAPSULE, 3X/DAY
     Route: 048
     Dates: start: 20110520
  6. ASPIR LOW [Concomitant]
     Active Substance: ASPIRIN
     Dosage: 325 MG, 1X/DAY
     Route: 048
  7. LOVASTATIN. [Concomitant]
     Active Substance: LOVASTATIN
     Dosage: 40 MG, 1X/DAY (1 TABLET WITH A MEAL)
     Route: 048
  8. MECLIZINE HCL [Concomitant]
     Active Substance: MECLIZINE HYDROCHLORIDE
     Indication: DIZZINESS
     Dosage: 12.5 MG, 4X/DAY (AS NEEDED)
     Route: 048
     Dates: start: 20160121
  9. SEPTRA DS [Concomitant]
     Active Substance: SULFAMETHOXAZOLE\TRIMETHOPRIM
     Dosage: 1 DF, 2X/DAY {SULFAMETHOXAZOLE-800MG} /{TRIMETHOPRIM-160 MG}
     Route: 048
     Dates: start: 20160628
  10. LYRICA [Suspect]
     Active Substance: PREGABALIN
     Dosage: 150 MG CAPSULE, 1X/DAY
     Route: 048
     Dates: start: 20150808, end: 201508
  11. ATENOLOL/CHLORTHALIDONE [Concomitant]
     Active Substance: ATENOLOL\CHLORTHALIDONE
     Dosage: 1 DF, DAILY (ATENOLOL-50MG, CHLORTALIDONE-25MG)
     Route: 048
  12. HYDROCHLOROTHIAZIDE. [Concomitant]
     Active Substance: HYDROCHLOROTHIAZIDE
     Dosage: 25 MG, DAILY
     Route: 048
  13. FLEXIPEN [Concomitant]
     Indication: TYPE 2 DIABETES MELLITUS
     Dosage: EVERY NIGHT AS AN INJECTION INTO HER STOMACH, DAILY
  14. LEVEMIR [Concomitant]
     Active Substance: INSULIN DETEMIR
     Dosage: 58 IU, DAILY
     Route: 058
     Dates: start: 20141016
  15. FENOFIBRATE. [Concomitant]
     Active Substance: FENOFIBRATE
     Dosage: 145 MG, DAILY
     Route: 048
  16. PROZAC [Concomitant]
     Active Substance: FLUOXETINE HYDROCHLORIDE
     Dosage: 10 MG, 1X/DAY (1 CAPSULE IN THE MORNING)
     Route: 048
     Dates: start: 20150319
  17. ONE DAILY ADULTS 50+ [Concomitant]
     Dosage: UNK
     Route: 048

REACTIONS (5)
  - Neuralgia [Unknown]
  - Back pain [Unknown]
  - Poor peripheral circulation [Unknown]
  - Drug ineffective [Unknown]
  - Pain in extremity [Unknown]
